FAERS Safety Report 9202522 (Version 1)
Quarter: 2013Q2

REPORT INFORMATION
  Report Type: Report from Study
  Country: DE (occurrence: DE)
  Receive Date: 20130401
  Receipt Date: 20130401
  Transmission Date: 20140414
  Serious: Yes (Hospitalization)
  Sender: FDA-Public Use
  Company Number: DE-TEVA-394475GER

PATIENT
  Sex: Female

DRUGS (18)
  1. DOXORUBICIN [Suspect]
     Indication: B-CELL LYMPHOMA
     Route: 042
     Dates: start: 20121025, end: 20121025
  2. DOXORUBICIN [Suspect]
     Route: 042
     Dates: start: 20121210
  3. VINCRISTINE [Suspect]
     Indication: B-CELL LYMPHOMA
     Route: 042
     Dates: start: 20121025, end: 20121025
  4. PREDNISONE [Suspect]
     Indication: B-CELL LYMPHOMA
     Dosage: 100 MILLIGRAM DAILY;
     Route: 048
     Dates: start: 20121023, end: 20121027
  5. RITUXIMAB [Suspect]
     Indication: B-CELL LYMPHOMA
     Route: 042
     Dates: start: 20121105, end: 20121105
  6. RITUXIMAB [Suspect]
     Route: 042
     Dates: start: 20121210
  7. CYCLOPHOSPHAMIDE [Suspect]
     Indication: B-CELL LYMPHOMA
     Route: 042
     Dates: start: 20121025, end: 20121025
  8. PEGFILGRASTIM [Suspect]
     Indication: B-CELL LYMPHOMA
     Route: 058
     Dates: start: 20121029, end: 20121029
  9. ENALAPRIL [Concomitant]
     Indication: HYPERTENSION
     Dosage: 40 MILLIGRAM DAILY;
     Route: 048
  10. BISOPROLOL [Concomitant]
     Indication: CORONARY ARTERY DISEASE
     Dosage: 5 MILLIGRAM DAILY;
     Route: 048
  11. FUROSEMID [Concomitant]
     Dosage: 40 MILLIGRAM DAILY;
     Route: 048
  12. NATRIUMHYDROGENCARBONAT [Concomitant]
     Indication: PROPHYLAXIS
     Dosage: 4 GRAM DAILY;
     Route: 048
     Dates: start: 20121023
  13. AMLODIPIN [Concomitant]
     Indication: HYPERTENSION
     Dosage: 5 MILLIGRAM DAILY;
     Route: 048
  14. ALLOPURINOL [Concomitant]
     Indication: PROPHYLAXIS
     Dosage: 100 MILLIGRAM DAILY;
     Route: 048
  15. ASPIRIN [Concomitant]
     Indication: PROPHYLAXIS
     Dosage: 100 MILLIGRAM DAILY;
     Route: 048
  16. PANTOPRAZOL NATRIUM [Concomitant]
     Indication: PROPHYLAXIS AGAINST GASTROINTESTINAL ULCER
     Dosage: 40 MILLIGRAM DAILY;
     Route: 048
  17. ENOXAPARIN [Concomitant]
     Indication: PROPHYLAXIS
     Dosage: 60 MILLIGRAM DAILY;
     Route: 058
     Dates: end: 20121108
  18. ENOXAPARIN [Concomitant]
     Dosage: 120 MILLIGRAM DAILY;
     Route: 058
     Dates: start: 20121108

REACTIONS (2)
  - Atrial fibrillation [Recovered/Resolved]
  - Mitral valve disease [Recovered/Resolved with Sequelae]
